FAERS Safety Report 5115389-8 (Version None)
Quarter: 2006Q3

REPORT INFORMATION
  Report Type: 
  Country: None (occurrence: None)
  Receive Date: 20060922
  Receipt Date: 20060906
  Transmission Date: 20061208
  Serious: Yes (Hospitalization, Other)
  Sender: FDA-Public Use
  Company Number: 8016933

PATIENT
  Age: 21 Year
  Sex: Male

DRUGS (3)
  1. KEPPRA [Suspect]
     Indication: EPILEPSY
     Dates: start: 20060201, end: 20060325
  2. KEPPRA [Suspect]
     Indication: EPILEPSY
  3. OXCARBAZEPINE [Concomitant]

REACTIONS (16)
  - ALANINE AMINOTRANSFERASE INCREASED [None]
  - ALCOHOL USE [None]
  - AMNESIA [None]
  - BLOOD BICARBONATE DECREASED [None]
  - BLOOD CALCIUM DECREASED [None]
  - DRUG ABUSER [None]
  - DRUG TOXICITY [None]
  - HEPATIC FAILURE [None]
  - HEPATIC NECROSIS [None]
  - HEPATOTOXICITY [None]
  - LIVER TRANSPLANT [None]
  - MEAN CELL VOLUME INCREASED [None]
  - NEUTROPHIL COUNT INCREASED [None]
  - PCO2 DECREASED [None]
  - PLEURAL EFFUSION [None]
  - SMOKER [None]
